FAERS Safety Report 16508300 (Version 1)
Quarter: 2019Q3

REPORT INFORMATION
  Report Type: Report from Study
  Country: US (occurrence: US)
  Receive Date: 20190702
  Receipt Date: 20190702
  Transmission Date: 20191004
  Serious: Yes (Hospitalization)
  Sender: FDA-Public Use
  Company Number: US-ROCHE-2333634

PATIENT
  Age: 61 Year
  Sex: Female
  Weight: 86.26 kg

DRUGS (12)
  1. PREDNISONE. [Concomitant]
     Active Substance: PREDNISONE
  2. PLAQUENIL [Concomitant]
     Active Substance: HYDROXYCHLOROQUINE SULFATE
     Dosage: 200 MG 2 TABLETS ONCE A DAY ;ONGOING: YES?REMICADE INDUCED LUPUS
     Route: 048
  3. REMICADE [Concomitant]
     Active Substance: INFLIXIMAB
     Dosage: REACTION: LUPUS
     Route: 065
  4. CYMBALTA [Concomitant]
     Active Substance: DULOXETINE HYDROCHLORIDE
     Indication: ANXIETY
     Dosage: 60 MG ONE A DAY ;ONGOING: YES
     Route: 048
  5. MOTRIN [Concomitant]
     Active Substance: IBUPROFEN
     Indication: RHEUMATOID ARTHRITIS
     Dosage: OVER-THE-COUNTER MOTRIN AS NEEDED ;ONGOING: YES
     Route: 048
  6. DILTIAZEM. [Concomitant]
     Active Substance: DILTIAZEM
     Indication: HYPERTENSION
     Dosage: 420 MG  TABLET ONCE A DAY ;ONGOING: YES
     Route: 048
  7. FLOMAX [Concomitant]
     Active Substance: TAMSULOSIN HYDROCHLORIDE
     Dosage: 0.4 MG IN EVENING ONCE A DAY ;ONGOING: YES
     Route: 048
     Dates: start: 201903
  8. SYNTHROID [Concomitant]
     Active Substance: LEVOTHYROXINE SODIUM
     Indication: HYPOTHYROIDISM
     Dosage: 100 MCG TABLET ONCE A DAY ;ONGOING: YES
     Route: 048
  9. ZYRTEC [Concomitant]
     Active Substance: CETIRIZINE HYDROCHLORIDE
     Indication: SEASONAL ALLERGY
     Dosage: ONCE A DAY ;ONGOING: YES
     Route: 065
  10. DEXILANT [Concomitant]
     Active Substance: DEXLANSOPRAZOLE
     Indication: GASTROOESOPHAGEAL REFLUX DISEASE
     Dosage: 60 MG 1 CAPSULE ONCE A DAY ;ONGOING: YES
     Route: 048
  11. BENTYL [Concomitant]
     Active Substance: DICYCLOMINE HYDROCHLORIDE
     Indication: IRRITABLE BOWEL SYNDROME
     Dosage: 10 MG ONCE A DAY ;ONGOING: YES
     Route: 048
     Dates: start: 201903
  12. RITUXAN [Suspect]
     Active Substance: RITUXIMAB
     Indication: RHEUMATOID ARTHRITIS
     Dosage: ONGOING: YES,2 DOSES EVERY 6 MONTHS
     Route: 042
     Dates: start: 201807

REACTIONS (4)
  - Urinary retention [Recovering/Resolving]
  - Blood sodium decreased [Recovered/Resolved]
  - White blood cell count increased [Recovered/Resolved]
  - Large intestine infection [Recovered/Resolved]

NARRATIVE: CASE EVENT DATE: 201811
